FAERS Safety Report 8160148-5 (Version None)
Quarter: 2012Q1

REPORT INFORMATION
  Report Type: 
  Country: None (occurrence: None)
  Receive Date: 20120223
  Receipt Date: 20120213
  Transmission Date: 20120608
  Serious: Yes (Other)
  Sender: FDA-Public Use
  Company Number: US-ELI_LILLY_AND_COMPANY-US201202004416

PATIENT
  Age: 43 Year
  Sex: Male

DRUGS (3)
  1. EFFIENT [Suspect]
     Dosage: 10 MG, QD
     Dates: start: 20120131, end: 20120211
  2. ASPIRIN [Concomitant]
  3. CARDURA [Concomitant]

REACTIONS (1)
  - THROMBOSIS IN DEVICE [None]
